FAERS Safety Report 24752403 (Version 1)
Quarter: 2024Q4

REPORT INFORMATION
  Report Type: Spontaneous
  Country: JP (occurrence: JP)
  Receive Date: 20241219
  Receipt Date: 20241219
  Transmission Date: 20250115
  Serious: Yes (Death, Other)
  Sender: TEVA
  Company Number: JP-TEVA-VS-3270836

PATIENT
  Age: 76 Year
  Sex: Male

DRUGS (1)
  1. LANSOPRAZOLE [Suspect]
     Active Substance: LANSOPRAZOLE
     Indication: Gastric ulcer
     Dosage: DOSAGE IS UNKNOWN
     Route: 042
     Dates: start: 20241120, end: 20241125

REACTIONS (3)
  - Pancytopenia [Fatal]
  - Blood pressure decreased [Unknown]
  - Pneumonia [Fatal]

NARRATIVE: CASE EVENT DATE: 20241101
